FAERS Safety Report 13736203 (Version 1)
Quarter: 2017Q3

REPORT INFORMATION
  Report Type: Other
  Country: DE (occurrence: DE)
  Receive Date: 20170710
  Receipt Date: 20170710
  Transmission Date: 20171127
  Serious: Yes (Congenital Anomaly, Other)
  Sender: FDA-Public Use
  Company Number: DE-LUPIN PHARMACEUTICALS INC.-2017-03633

PATIENT

DRUGS (3)
  1. FOLIO FORTE [Concomitant]
     Active Substance: FOLIC ACID\VITAMINS
     Indication: PROPHYLAXIS OF NEURAL TUBE DEFECT
     Dosage: 0.8 MG, UNK (0. - 35. GESTATIONAL WEEK)
     Route: 064
     Dates: start: 20150108, end: 20150910
  2. HOGGAR NIGHT [Concomitant]
     Indication: SLEEP DISORDER
     Dosage: 25 MG, QD (32. - 35. GESTATIONAL WEEK)
     Route: 064
  3. LAMOTRIGINE. [Suspect]
     Active Substance: LAMOTRIGINE
     Indication: BIPOLAR DISORDER
     Dosage: 100 MG, QD (0. - 35. GESTATIONAL WEEK)
     Route: 064
     Dates: start: 20150108, end: 20150910

REACTIONS (3)
  - Foetal exposure during pregnancy [Unknown]
  - Haemangioma congenital [Recovering/Resolving]
  - Premature baby [Unknown]

NARRATIVE: CASE EVENT DATE: 20150108
